FAERS Safety Report 4400549-1 (Version None)
Quarter: 2004Q3

REPORT INFORMATION
  Report Type: 
  Country: None (occurrence: None)
  Receive Date: 20040716
  Receipt Date: 20040716
  Transmission Date: 20050211
  Serious: Yes (Hospitalization)
  Sender: FDA-Public Use
  Company Number: None

PATIENT
  Age: 82 Year
  Sex: Male
  Weight: 115 kg

DRUGS (1)
  1. IBUPROFEN [Suspect]

REACTIONS (4)
  - ECCHYMOSIS [None]
  - EXCORIATION [None]
  - RASH [None]
  - SCROTAL SWELLING [None]
